FAERS Safety Report 9865543 (Version 1)
Quarter: 2014Q1

REPORT INFORMATION
  Report Type: Spontaneous
  Country: US (occurrence: US)
  Receive Date: 20140203
  Receipt Date: 20140203
  Transmission Date: 20141002
  Serious: No
  Sender: FDA-Public Use
  Company Number: US-ALLERGAN-1309258US

PATIENT
  Age: 57 Year
  Sex: Female

DRUGS (5)
  1. RESTASIS [Suspect]
     Indication: DRY EYE
     Dosage: 2 GTT, BID
     Route: 047
  2. GENTEAL DROPS FOR DAYTIME [Suspect]
     Indication: DRY EYE
     Dosage: 2 GTT, PRN
     Route: 047
  3. GENTEAL DROPS FOR NIGHTTIME [Suspect]
     Indication: DRY EYE
     Dosage: 2 GTT, QHS
     Route: 047
  4. OMEGA 3                            /01333901/ [Concomitant]
     Indication: SUPPLEMENTATION THERAPY
     Dosage: UNK UNK, QD
     Route: 048
  5. DOXYCYCLINE [Concomitant]
     Indication: EYE DISORDER
     Dosage: UNK
     Dates: start: 201209

REACTIONS (4)
  - Visual impairment [Not Recovered/Not Resolved]
  - Lacrimation increased [Recovering/Resolving]
  - Vision blurred [Not Recovered/Not Resolved]
  - Instillation site pain [Not Recovered/Not Resolved]
